FAERS Safety Report 7550317-7 (Version None)
Quarter: 2011Q2

REPORT INFORMATION
  Report Type: 
  Country: None (occurrence: None)
  Receive Date: 20110615
  Receipt Date: 20110603
  Transmission Date: 20111010
  Serious: Yes (Hospitalization, Other)
  Sender: FDA-Public Use
  Company Number: GB-UCBSA-031396

PATIENT
  Sex: Male

DRUGS (11)
  1. VIMPAT [Suspect]
  2. VIMPAT [Suspect]
  3. CARBAMAZEPINE [Concomitant]
     Dosage: MORNING AND AFTERNOON 14:00
     Route: 048
  4. CARBAMAZEPINE [Concomitant]
     Route: 048
  5. KEPPRA [Concomitant]
     Route: 048
  6. KEPPRA [Concomitant]
     Route: 048
  7. CARBAMAZEPINE [Concomitant]
     Dosage: MORNING AND AFTERNOON 14:00
     Route: 048
  8. CLOBAZAM [Concomitant]
     Dosage: UNKNOWN
     Route: 048
  9. VIMPAT [Suspect]
     Indication: EPILEPSY
  10. VIMPAT [Suspect]
     Dosage: GRADUAL WITHDRAWAL OF LACOSAMIDE AT THE RATE OF 50 MG LESS EVERY WEEK
  11. KEPPRA [Concomitant]
     Dosage: 1 TABLET
     Route: 048

REACTIONS (16)
  - APHONIA [None]
  - DYSPNOEA [None]
  - MUSCULAR WEAKNESS [None]
  - DIPLOPIA [None]
  - BALANCE DISORDER [None]
  - HYPERHIDROSIS [None]
  - DYSURIA [None]
  - TREMOR [None]
  - BLINDNESS [None]
  - FEELING DRUNK [None]
  - MUSCLE TWITCHING [None]
  - VISION BLURRED [None]
  - PULMONARY OEDEMA [None]
  - LACRIMATION INCREASED [None]
  - ARTHROPATHY [None]
  - CONVULSION [None]
